FAERS Safety Report 15534732 (Version 1)
Quarter: 2018Q4

REPORT INFORMATION
  Report Type: Spontaneous
  Country: US (occurrence: US)
  Receive Date: 20181022
  Receipt Date: 20181022
  Transmission Date: 20190205
  Serious: Yes (Other)
  Sender: FDA-Public Use
  Company Number: US-ROCHE-2200745

PATIENT
  Sex: Male
  Weight: 77.18 kg

DRUGS (9)
  1. KLONOPIN [Suspect]
     Active Substance: CLONAZEPAM
     Indication: PANIC DISORDER
     Route: 065
  2. KLONOPIN [Suspect]
     Active Substance: CLONAZEPAM
     Route: 065
  3. HERBS [Concomitant]
     Active Substance: HERBALS
     Dosage: ONGOING: UNKNOWN
     Route: 065
  4. VITAMIN B6 [Concomitant]
     Active Substance: PYRIDOXINE HYDROCHLORIDE
     Dosage: ONGOING: UNKNOWN
     Route: 065
  5. VITAMIN B12 [Concomitant]
     Active Substance: CYANOCOBALAMIN
     Dosage: ONGOING: UNKNOWN
     Route: 065
  6. KLONOPIN [Suspect]
     Active Substance: CLONAZEPAM
     Indication: TINNITUS
     Route: 065
  7. KLONOPIN [Suspect]
     Active Substance: CLONAZEPAM
     Route: 065
  8. NORCO [Concomitant]
     Active Substance: ACETAMINOPHEN\HYDROCODONE BITARTRATE
     Route: 065
  9. KLONOPIN [Suspect]
     Active Substance: CLONAZEPAM
     Indication: ANXIETY
     Route: 065

REACTIONS (8)
  - Kidney infection [Unknown]
  - Withdrawal syndrome [Unknown]
  - Nervousness [Unknown]
  - Headache [Unknown]
  - Incorrect dose administered [Unknown]
  - Prostate infection [Unknown]
  - Hypoacusis [Unknown]
  - Blood pressure increased [Not Recovered/Not Resolved]
